FAERS Safety Report 10329779 (Version 2)
Quarter: 2014Q3

REPORT INFORMATION
  Report Type: Spontaneous
  Country: US (occurrence: US)
  Receive Date: 20140721
  Receipt Date: 20140724
  Transmission Date: 20150326
  Serious: No
  Sender: FDA-Public Use
  Company Number: US-PFIZER INC-2014202314

PATIENT
  Age: 90 Year

DRUGS (1)
  1. VIAGRA [Suspect]
     Active Substance: SILDENAFIL CITRATE
     Dosage: UNK, (ONCE A WEEK)

REACTIONS (3)
  - Expired product administered [Unknown]
  - Food interaction [Unknown]
  - Drug effect decreased [Unknown]
